FAERS Safety Report 4555907-1 (Version None)
Quarter: 2005Q1

REPORT INFORMATION
  Report Type: 
  Country: None (occurrence: None)
  Receive Date: 20050119
  Receipt Date: 20050113
  Transmission Date: 20050727
  Serious: Yes (Hospitalization)
  Sender: FDA-Public Use
  Company Number: ES-MERCK-0501ESP00016

PATIENT
  Age: 56 Year
  Sex: Male

DRUGS (7)
  1. COZAAR [Suspect]
     Indication: CARDIAC FAILURE CONGESTIVE
     Route: 048
  2. ALDACTONE [Suspect]
     Indication: CARDIAC FAILURE CONGESTIVE
     Route: 048
     Dates: end: 20040804
  3. ASCORBIC ACID [Suspect]
     Indication: HYPOKALAEMIA
     Route: 048
     Dates: end: 20040804
  4. POTASSIUM BICARBONATE [Suspect]
     Indication: HYPOKALAEMIA
     Route: 048
     Dates: end: 20040804
  5. ATROVENT [Concomitant]
     Indication: LUNG DISORDER
     Route: 055
  6. PULMICORT [Concomitant]
     Indication: LUNG DISORDER
     Route: 055
  7. SINTROM [Concomitant]
     Indication: PROPHYLAXIS
     Route: 048

REACTIONS (2)
  - DRUG INTERACTION [None]
  - HYPERKALAEMIA [None]
